FAERS Safety Report 8974710 (Version 1)
Quarter: 2012Q4

REPORT INFORMATION
  Report Type: 
  Country: PL (occurrence: PL)
  Receive Date: 20121219
  Receipt Date: 20121219
  Transmission Date: 20130627
  Serious: Yes (Other)
  Sender: FDA-Public Use
  Company Number: PL-UCBSA-072828

PATIENT
  Age: 45 Year
  Sex: Female

DRUGS (11)
  1. KEPPRA [Suspect]
     Indication: EPILEPSY
     Dates: start: 201008
  2. KEPPRA [Suspect]
     Indication: EPILEPSY
     Dosage: 1500-500-1000 MG
  3. FOLIC ACID [Concomitant]
  4. CARBAMAZEPINE [Concomitant]
     Dosage: 800-400
     Dates: start: 201008
  5. CARBAMAZEPINE [Concomitant]
     Dosage: 800-300-300
  6. CARBAMAZEPINE [Concomitant]
     Dosage: 600-300-300
  7. CARBAMAZEPINE [Concomitant]
     Dosage: 600-400-400
  8. FRISIUM [Concomitant]
     Dosage: 1/2-1/2-0
  9. GABAPENTIN [Concomitant]
     Dosage: 3x600
  10. GABAPENTIN [Concomitant]
     Dosage: 3x300
  11. VIMPAT [Concomitant]
     Indication: PARTIAL SEIZURES
     Dosage: SINCE 8 OCT TO 21 NOV

REACTIONS (2)
  - Leukopenia [Recovering/Resolving]
  - Convulsion [Unknown]
